FAERS Safety Report 13550399 (Version 3)
Quarter: 2017Q3

REPORT INFORMATION
  Report Type: Spontaneous
  Country: JP (occurrence: JP)
  Receive Date: 20170516
  Receipt Date: 20170728
  Transmission Date: 20171127
  Serious: Yes (Other)
  Sender: FDA-Public Use
  Company Number: PHJP2017JP015790

PATIENT
  Age: 75 Year
  Sex: Female

DRUGS (2)
  1. VOTRIENT [Suspect]
     Active Substance: PAZOPANIB HYDROCHLORIDE
     Indication: LEIOMYOSARCOMA
     Dosage: 800 MG, QD
     Route: 048
     Dates: start: 201304
  2. VOTRIENT [Suspect]
     Active Substance: PAZOPANIB HYDROCHLORIDE
     Dosage: 400 MG, QD
     Route: 048

REACTIONS (7)
  - Nausea [Unknown]
  - Anaemia [Recovered/Resolved]
  - Leiomyosarcoma [Unknown]
  - Hypothyroidism [Unknown]
  - Malignant neoplasm progression [Unknown]
  - Malaise [Unknown]
  - Decreased appetite [Unknown]
